FAERS Safety Report 20257841 (Version 1)
Quarter: 2021Q4

REPORT INFORMATION
  Report Type: Spontaneous
  Country: US (occurrence: None)
  Receive Date: 20211229
  Receipt Date: 20211229
  Transmission Date: 20220303
  Serious: Yes (Other)
  Sender: FDA-Public Use
  Company Number: None

PATIENT
  Age: 18 Year
  Sex: Male
  Weight: 67.5 kg

DRUGS (1)
  1. COPPERTONE PURE AND SIMPLE SUNSCREEN SPF 50 [Suspect]
     Active Substance: ZINC OXIDE
     Indication: Prophylaxis against solar radiation
     Dosage: OTHER FREQUENCY : ONE TIME USE;?
     Route: 061

REACTIONS (1)
  - Application site rash [None]

NARRATIVE: CASE EVENT DATE: 20210902
